FAERS Safety Report 16663444 (Version 1)
Quarter: 2019Q3

REPORT INFORMATION
  Report Type: Report from Study
  Country: US (occurrence: US)
  Receive Date: 20190802
  Receipt Date: 20190802
  Transmission Date: 20191004
  Serious: No
  Sender: FDA-Public Use
  Company Number: US-EXELIXIS-CABO-19021404

PATIENT
  Sex: Male

DRUGS (12)
  1. CABOMETYX [Suspect]
     Active Substance: CABOZANTINIB S-MALATE
     Indication: RENAL CANCER
     Dosage: 60 MG, QD
     Route: 048
     Dates: start: 20161206
  2. LEVOTHYROXINE. [Concomitant]
     Active Substance: LEVOTHYROXINE
  3. BUPROPION. [Concomitant]
     Active Substance: BUPROPION
  4. DULOXETINE. [Concomitant]
     Active Substance: DULOXETINE
  5. GABAPENTIN. [Concomitant]
     Active Substance: GABAPENTIN
  6. FLUDROCORTISONE [Concomitant]
     Active Substance: FLUDROCORTISONE
  7. LORAZEPAM. [Concomitant]
     Active Substance: LORAZEPAM
  8. OXYCODONE [Concomitant]
     Active Substance: OXYCODONE
  9. ZOLPIDEM [Concomitant]
     Active Substance: ZOLPIDEM TARTRATE
  10. CABOMETYX [Suspect]
     Active Substance: CABOZANTINIB S-MALATE
     Dosage: 40 MG, QD
     Route: 048
  11. MIDODRINE [Concomitant]
     Active Substance: MIDODRINE
  12. CALCIUM/VITAMIN D [Concomitant]
     Active Substance: CALCIUM\VITAMIN D

REACTIONS (1)
  - Bone lesion [Unknown]
